FAERS Safety Report 4643764-4 (Version None)
Quarter: 2005Q2

REPORT INFORMATION
  Report Type: 
  Country: None (occurrence: None)
  Receive Date: 20050422
  Receipt Date: 20050422
  Transmission Date: 20051028
  Serious: Yes (Other)
  Sender: FDA-Public Use
  Company Number: None

PATIENT
  Age: 55 Year
  Sex: Male
  Weight: 103.2 kg

DRUGS (14)
  1. AMOXICILLIN [Suspect]
  2. FLUNISOLIDE [Concomitant]
  3. AMOXICILLIN [Concomitant]
  4. QUETIAPINE FUMARATE [Concomitant]
  5. SERTRALINE HCL [Concomitant]
  6. KETOROLAC TROMETHAMINE [Concomitant]
  7. ETODOLAC [Concomitant]
  8. ALLOPURINOL [Concomitant]
  9. COLCHICINE [Concomitant]
  10. LORATADINE [Concomitant]
  11. OMEPRAZOLE [Concomitant]
  12. DOCUSATE NA [Concomitant]
  13. DIPHENHYDRAMINE HCL [Concomitant]
  14. PSYLLIUM SF [Concomitant]

REACTIONS (1)
  - RASH [None]
